FAERS Safety Report 21345888 (Version 3)
Quarter: 2022Q4

REPORT INFORMATION
  Report Type: Spontaneous
  Country: US (occurrence: DO)
  Receive Date: 20220916
  Receipt Date: 20221104
  Transmission Date: 20230113
  Serious: Yes (Other)
  Sender: FDA-Public Use
  Company Number: US-PFIZER INC-202201152282

PATIENT
  Age: 15 Year
  Sex: Female
  Weight: 37 kg

DRUGS (1)
  1. GENOTROPIN [Suspect]
     Active Substance: SOMATROPIN
     Indication: Growth disorder
     Dosage: 1.5 MG, DAILY
     Route: 058
     Dates: start: 202203, end: 2022

REACTIONS (1)
  - Suicidal ideation [Unknown]
